FAERS Safety Report 17842729 (Version 1)
Quarter: 2020Q2

REPORT INFORMATION
  Report Type: Report from Study
  Country: None (occurrence: US)
  Receive Date: 20200530
  Receipt Date: 20200530
  Transmission Date: 20200714
  Serious: Yes (Other)
  Sender: FDA-Public Use
  Company Number: US-ABBVIE-18K-163-2507545-00

PATIENT
  Age: 63 Year
  Sex: Male
  Weight: 102.6 kg

DRUGS (7)
  1. VENCLEXTA [Suspect]
     Active Substance: VENETOCLAX
     Route: 048
     Dates: start: 2018, end: 2018
  2. VENCLEXTA [Suspect]
     Active Substance: VENETOCLAX
     Indication: CHRONIC LYMPHOCYTIC LEUKAEMIA
     Route: 048
     Dates: start: 20180615, end: 2018
  3. IMBRUVICA [Suspect]
     Active Substance: IBRUTINIB
     Indication: PRODUCT USED FOR UNKNOWN INDICATION
     Route: 048
  4. LOSARTAN. [Concomitant]
     Active Substance: LOSARTAN
     Indication: HYPERTENSION
  5. VENCLEXTA [Suspect]
     Active Substance: VENETOCLAX
     Route: 048
  6. VENCLEXTA [Suspect]
     Active Substance: VENETOCLAX
     Route: 048
     Dates: start: 2018, end: 2018
  7. VENCLEXTA [Suspect]
     Active Substance: VENETOCLAX
     Route: 048
     Dates: start: 20180615

REACTIONS (27)
  - Apnoea [Recovering/Resolving]
  - Nasopharyngitis [Not Recovered/Not Resolved]
  - Haemorrhagic diathesis [Recovered/Resolved]
  - Malaise [Recovering/Resolving]
  - White blood cell count decreased [Recovered/Resolved]
  - Fatigue [Not Recovered/Not Resolved]
  - Weight increased [Unknown]
  - Lymphadenopathy [Not Recovered/Not Resolved]
  - White blood cell count increased [Unknown]
  - Asthenia [Not Recovered/Not Resolved]
  - General physical health deterioration [Not Recovered/Not Resolved]
  - Sinus rhythm [Unknown]
  - Musculoskeletal stiffness [Recovering/Resolving]
  - Hypersensitivity [Not Recovered/Not Resolved]
  - Platelet count decreased [Recovered/Resolved]
  - Skin atrophy [Unknown]
  - Chronic lymphocytic leukaemia [Unknown]
  - White blood cell count decreased [Recovering/Resolving]
  - Sinusitis [Recovering/Resolving]
  - Back pain [Unknown]
  - Traumatic haemorrhage [Unknown]
  - Red blood cell count increased [Unknown]
  - Haemoglobin decreased [Unknown]
  - Atrial fibrillation [Unknown]
  - Skin laceration [Recovered/Resolved]
  - Red blood cell count decreased [Recovered/Resolved]
  - Blood uric acid increased [Recovered/Resolved]

NARRATIVE: CASE EVENT DATE: 2018
